FAERS Safety Report 5282860-8 (Version None)
Quarter: 2007Q1

REPORT INFORMATION
  Report Type: 
  Country: None (occurrence: None)
  Receive Date: 20070314
  Receipt Date: 20070227
  Transmission Date: 20070707
  Serious: Yes (Other)
  Sender: FDA-Public Use
  Company Number: AECAN200700051

PATIENT
  Age: 78 Year
  Sex: Male
  Weight: 79 kg

DRUGS (2)
  1. GAMUNEX [Suspect]
     Indication: MUSCULAR WEAKNESS
     Dosage: 5 GM; BIW; IV
     Route: 042
     Dates: start: 20070201, end: 20070201
  2. IGIVNEX - TALECRIS (IMMUNE GLOBULIN IV (HUMAN), CAPRYLATE/CHROMATOGRAP [Suspect]
     Indication: MUSCULAR WEAKNESS
     Dosage: 20 GM; BIW; IV
     Route: 042
     Dates: start: 20070201, end: 20070201

REACTIONS (1)
  - TRANSIENT ISCHAEMIC ATTACK [None]
